FAERS Safety Report 9888007 (Version 3)
Quarter: 2014Q1

REPORT INFORMATION
  Report Type: Report from Study
  Country: DE (occurrence: DE)
  Receive Date: 20140211
  Receipt Date: 20140310
  Transmission Date: 20141002
  Serious: No
  Sender: FDA-Public Use
  Company Number: DE-AMGEN-DEUNI2014009502

PATIENT
  Age: 71 Year
  Sex: Male

DRUGS (11)
  1. DENOSUMAB [Suspect]
     Indication: METASTASES TO BONE
     Dosage: 120 MG, Q4WK
     Route: 058
     Dates: start: 20131030
  2. OMEPRAZOLE [Concomitant]
     Dosage: 20 MG, BID
     Route: 048
  3. BISOPROLOL [Concomitant]
     Dosage: 5 MG, QD
     Route: 048
  4. MORPHINE [Concomitant]
     Dosage: 10 MG, BID
     Route: 048
  5. FLUTAMIDE [Concomitant]
     Dosage: 250 MG, TID
     Route: 048
  6. CALCIUM [Concomitant]
     Dosage: 50 MG, BID
     Route: 048
  7. ACETYLSALICYLIC ACID [Concomitant]
     Dosage: 100 MG, QD
     Route: 048
  8. METAMIZOL                          /06276702/ [Concomitant]
     Dosage: 35 GTT, TID
     Route: 048
  9. METOCLOPRAMIDE [Concomitant]
     Dosage: 20 GTT, BEFORE MEAL
     Route: 048
  10. FENTANYL [Concomitant]
     Dosage: 200 MG, BREAK THROUGH PAIN
     Route: 060
  11. TRENANTONE [Concomitant]

REACTIONS (1)
  - Bronchopneumonia [Recovering/Resolving]
